FAERS Safety Report 5235252-1 (Version None)
Quarter: 2007Q1

REPORT INFORMATION
  Report Type: 
  Country: None (occurrence: None)
  Receive Date: 20070212
  Receipt Date: 20070206
  Transmission Date: 20070707
  Serious: Yes (Death, Hospitalization)
  Sender: FDA-Public Use
  Company Number: BE-ELI_LILLY_AND_COMPANY-BE200612003235

PATIENT
  Age: 44 Year
  Sex: Female

DRUGS (6)
  1. ZYPREXA [Suspect]
     Indication: PSYCHOTIC DISORDER
     Dosage: 20 MG, DAILY (1/D)
     Route: 030
     Dates: start: 20061212, end: 20061213
  2. ZYPREXA [Suspect]
     Indication: PSYCHOTIC DISORDER
     Dosage: 15 MG, DAILY (1/D)
     Route: 048
     Dates: start: 20061211, end: 20061211
  3. ZYPREXA [Suspect]
     Dosage: 5 MG, DAILY (1/D)
     Route: 048
     Dates: start: 20061208, end: 20061208
  4. ZYPREXA [Suspect]
     Dosage: 10 MG, DAILY (1/D)
     Route: 048
     Dates: start: 20061209, end: 20061209
  5. ZYPREXA [Suspect]
     Dosage: 15 MG, DAILY (1/D)
     Route: 048
     Dates: start: 20061210, end: 20061210
  6. CLOPIXOL ACUTARD [Concomitant]
     Indication: PSYCHOTIC DISORDER
     Dosage: UNK, UNK
     Route: 030
     Dates: start: 20061213, end: 20061213

REACTIONS (1)
  - DEATH [None]
